FAERS Safety Report 5304974-6 (Version None)
Quarter: 2007Q2

REPORT INFORMATION
  Report Type: 
  Country: None (occurrence: None)
  Receive Date: 20070423
  Receipt Date: 20070411
  Transmission Date: 20071010
  Serious: Yes (Other)
  Sender: FDA-Public Use
  Company Number: CA-PFIZER INC-2007026198

PATIENT
  Age: 64 Year
  Sex: Male

DRUGS (5)
  1. NEURONTIN [Suspect]
     Indication: PAIN
     Route: 048
     Dates: start: 20030101, end: 20030101
  2. LYRICA [Suspect]
     Indication: PAIN
     Route: 048
     Dates: start: 20070327, end: 20070327
  3. MORPHINE [Concomitant]
  4. ALL OTHER THERAPEUTIC PRODUCTS [Concomitant]
     Route: 060
  5. PREDNISONE TAB [Concomitant]

REACTIONS (8)
  - ABDOMINAL PAIN UPPER [None]
  - DRUG HYPERSENSITIVITY [None]
  - HEART RATE INCREASED [None]
  - OEDEMA PERIPHERAL [None]
  - PARAESTHESIA ORAL [None]
  - RENAL DISORDER [None]
  - SWOLLEN TONGUE [None]
  - ULCER [None]
